FAERS Safety Report 6064774-9 (Version None)
Quarter: 2009Q1

REPORT INFORMATION
  Report Type: 
  Country: None (occurrence: None)
  Receive Date: 20090204
  Receipt Date: 20081203
  Transmission Date: 20090719
  Serious: No
  Sender: FDA-Public Use
  Company Number: A0758952A

PATIENT
  Age: 65 Year
  Sex: Female

DRUGS (6)
  1. ARIXTRA [Suspect]
     Indication: PULMONARY EMBOLISM
     Dosage: 7.5MG PER DAY
     Route: 058
     Dates: start: 20081114
  2. LEXAPRO [Concomitant]
  3. SYNTHROID [Concomitant]
  4. ATIVAN [Concomitant]
  5. PERCOCET [Concomitant]
  6. VITAMIN [Concomitant]

REACTIONS (2)
  - INCORRECT DOSE ADMINISTERED [None]
  - PRODUCT QUALITY ISSUE [None]
